FAERS Safety Report 10245463 (Version 1)
Quarter: 2014Q2

REPORT INFORMATION
  Report Type: Spontaneous
  Country: CN (occurrence: CN)
  Receive Date: 20140618
  Receipt Date: 20140618
  Transmission Date: 20141212
  Serious: Yes (Death, Other)
  Sender: FDA-Public Use
  Company Number: PHHY2014CN072991

PATIENT
  Age: 79 Year
  Sex: Male

DRUGS (6)
  1. CARBOPLATIN [Suspect]
     Indication: NEUROENDOCRINE CARCINOMA
  2. CARBOPLATIN [Suspect]
     Indication: METASTASES TO LYMPH NODES
  3. IRINOTECAN [Suspect]
     Indication: NEUROENDOCRINE CARCINOMA
  4. IRINOTECAN [Suspect]
     Indication: METASTASES TO LYMPH NODES
  5. DOCETAXEL [Suspect]
     Indication: NEUROENDOCRINE CARCINOMA
  6. DOCETAXEL [Suspect]
     Indication: METASTASES TO LYMPH NODES

REACTIONS (6)
  - Death [Fatal]
  - Drug intolerance [Unknown]
  - Bone marrow failure [Unknown]
  - Metastases to lung [Unknown]
  - Metastases to bone [Unknown]
  - Metastases to liver [Unknown]
